FAERS Safety Report 6639520-8 (Version None)
Quarter: 2010Q1

REPORT INFORMATION
  Report Type: 
  Country: None (occurrence: None)
  Receive Date: 20100318
  Receipt Date: 20100303
  Transmission Date: 20100710
  Serious: Yes (Life-Threatening, Hospitalization)
  Sender: FDA-Public Use
  Company Number: CH-ELI_LILLY_AND_COMPANY-CH201003001494

PATIENT
  Age: 87 Year
  Sex: Male
  Weight: 80 kg

DRUGS (6)
  1. EFFIENT [Suspect]
     Indication: ACUTE MYOCARDIAL INFARCTION
     Dosage: UNK UNK, DAILY (1/D)
     Route: 048
     Dates: start: 20100208, end: 20100208
  2. EFFIENT [Suspect]
     Dosage: 5 MG, DAILY (1/D)
     Route: 048
     Dates: start: 20100209, end: 20100215
  3. BELOC ZOK [Concomitant]
     Indication: ACUTE CORONARY SYNDROME
     Dosage: 50 MG, DAILY (1/D)
     Route: 048
     Dates: start: 20100208
  4. ASPIRIN [Concomitant]
     Indication: ACUTE CORONARY SYNDROME
     Dosage: 100 MG, DAILY (1/D)
     Route: 048
     Dates: start: 20100208
  5. SORTIS [Concomitant]
     Indication: ACUTE CORONARY SYNDROME
     Dosage: 40 MG, DAILY (1/D)
     Route: 048
     Dates: start: 20100208
  6. DAFALGAN [Concomitant]
     Indication: PAIN
     Dosage: 1 MG, 4/D
     Route: 048
     Dates: start: 20100210

REACTIONS (2)
  - RASH [None]
  - SYSTEMIC INFLAMMATORY RESPONSE SYNDROME [None]
